FAERS Safety Report 8310507 (Version 5)
Quarter: 2012Q4

REPORT INFORMATION
  Report Type: 
  Country: JP (occurrence: JP)
  Receive Date: 20111223
  Receipt Date: 20121004
  Transmission Date: 20130627
  Serious: Yes (Other)
  Sender: FDA-Public Use
  Company Number: JP-ALLERGAN-1116733US

PATIENT
  Age: 63 Year
  Sex: Male

DRUGS (1)
  1. LUMIGAN [Suspect]
     Indication: PRIMARY OPEN ANGLE GLAUCOMA
     Dosage: 1 Gtt, qpm
     Route: 047
     Dates: start: 20091127, end: 20101013

REACTIONS (4)
  - Glaucoma [Recovered/Resolved]
  - Cataract [Recovered/Resolved]
  - Conjunctival hyperaemia [Recovered/Resolved]
  - Conjunctival hyperaemia [Recovered/Resolved]
